FAERS Safety Report 15407369 (Version 1)
Quarter: 2018Q3

REPORT INFORMATION
  Report Type: Spontaneous
  Country: DE (occurrence: DE)
  Receive Date: 20180920
  Receipt Date: 20180920
  Transmission Date: 20181010
  Serious: Yes (Other)
  Sender: FDA-Public Use
  Company Number: DE-LANNETT COMPANY, INC.-DE-2018LAN001137

PATIENT
  Age: 50 Year
  Sex: Female

DRUGS (2)
  1. CLINDAMYCIN HYDROCHLORIDE (300 MG) [Suspect]
     Active Substance: CLINDAMYCIN HYDROCHLORIDE
     Indication: TOOTH INFECTION
     Dosage: UNK
     Route: 065
  2. SILYMARIN [Suspect]
     Active Substance: DIETARY SUPPLEMENT\HERBALS\MILK THISTLE
     Indication: SUPPLEMENTATION THERAPY
     Dosage: UNK
     Route: 065

REACTIONS (2)
  - Liver injury [Recovering/Resolving]
  - Drug interaction [Unknown]
